FAERS Safety Report 5164971-0 (Version None)
Quarter: 2006Q4

REPORT INFORMATION
  Report Type: 
  Country: None (occurrence: None)
  Receive Date: 20061124
  Receipt Date: 20061110
  Transmission Date: 20070319
  Serious: Yes (Disabling)
  Sender: FDA-Public Use
  Company Number: 2006142023

PATIENT
  Age: 84 Year
  Sex: Male

DRUGS (4)
  1. GABAPENTIN [Suspect]
     Indication: NEUROPATHY
     Dosage: 300 MG (100 MG, 3 IN 1 D), ORAL
     Route: 048
     Dates: start: 20060606, end: 20060708
  2. ACETAMINOPHEN [Concomitant]
  3. SOFRAMYCIN (FRAMYCETIN SULFATE) [Concomitant]
  4. TRAMADOL HCL [Concomitant]

REACTIONS (2)
  - COORDINATION ABNORMAL [None]
  - PAIN [None]
